FAERS Safety Report 8233589-5 (Version None)
Quarter: 2012Q1

REPORT INFORMATION
  Report Type: 
  Country: None (occurrence: None)
  Receive Date: 20120326
  Receipt Date: 20120316
  Transmission Date: 20120608
  Serious: Yes (Other)
  Sender: FDA-Public Use
  Company Number: PHHY2012GR023821

PATIENT
  Age: 31 Year
  Sex: Male

DRUGS (1)
  1. EXJADE [Suspect]
     Indication: THALASSAEMIA BETA
     Dosage: UNK UKN, UNK
     Route: 048
     Dates: start: 20111001, end: 20120201

REACTIONS (1)
  - BLOOD BILIRUBIN INCREASED [None]
